FAERS Safety Report 9695228 (Version 1)
Quarter: 2013Q4

REPORT INFORMATION
  Report Type: Spontaneous
  Country: US (occurrence: US)
  Receive Date: 20131119
  Receipt Date: 20131119
  Transmission Date: 20140711
  Serious: Yes (Other)
  Sender: FDA-Public Use
  Company Number: US-BAYER-2013-139531

PATIENT
  Age: 29 Year
  Sex: Female
  Weight: 69 kg

DRUGS (10)
  1. YAZ [Suspect]
     Route: 048
  2. ACETAMINOPHEN W/HYDROCODONE [Concomitant]
     Dosage: 7.5-650
     Dates: start: 20110808
  3. KETOROLAC [Concomitant]
     Dosage: 10 MG, UNK
     Dates: start: 20110808
  4. METHYLPREDNISOLONE [Concomitant]
     Dosage: 4 MG, PK
     Dates: start: 20110902
  5. PREDNISONE [Concomitant]
     Dosage: 7 DAYS
  6. ASA [Concomitant]
  7. ZITHROMAX Z-PAK [Concomitant]
  8. LEXAPRO [Concomitant]
     Indication: ANXIETY
     Dosage: 10 UNK, UNK
  9. ATIVAN [Concomitant]
     Indication: ANXIETY
     Dosage: 0.5 MG 1-2 BID
  10. PROZAC [Concomitant]

REACTIONS (1)
  - Deep vein thrombosis [None]
